FAERS Safety Report 20840602 (Version 2)
Quarter: 2022Q2

REPORT INFORMATION
  Report Type: Spontaneous
  Country: US (occurrence: US)
  Receive Date: 20220517
  Receipt Date: 20220531
  Transmission Date: 20220721
  Serious: Yes (Other)
  Sender: FDA-Public Use
  Company Number: US-PFIZER INC-202200587186

PATIENT
  Age: 75 Year
  Sex: Female

DRUGS (1)
  1. XELJANZ XR [Suspect]
     Active Substance: TOFACITINIB CITRATE
     Dosage: 11 MG

REACTIONS (23)
  - Haematochezia [Unknown]
  - Melaena [Unknown]
  - Sjogren^s syndrome [Unknown]
  - Pain [Unknown]
  - Musculoskeletal stiffness [Unknown]
  - Pyrexia [Unknown]
  - Infection [Unknown]
  - Fatigue [Unknown]
  - Eye disorder [Unknown]
  - Visual impairment [Unknown]
  - Stomatitis [Unknown]
  - Oral disorder [Unknown]
  - Skin lesion [Unknown]
  - Chest pain [Unknown]
  - Cough [Unknown]
  - Exercise tolerance decreased [Unknown]
  - Blood pressure abnormal [Unknown]
  - Joint effusion [Unknown]
  - Abdominal pain [Unknown]
  - Change of bowel habit [Unknown]
  - Jaundice [Unknown]
  - Genitourinary symptom [Unknown]
  - Blood glucose abnormal [Unknown]
